FAERS Safety Report 9286544 (Version 1)
Quarter: 2013Q2

REPORT INFORMATION
  Report Type: Spontaneous
  Country: US (occurrence: US)
  Receive Date: 20130513
  Receipt Date: 20130513
  Transmission Date: 20140414
  Serious: No
  Sender: FDA-Public Use
  Company Number: US-ASTRAZENECA-2013SE30907

PATIENT
  Sex: Female

DRUGS (3)
  1. PULMICORT FLEXHALER [Suspect]
     Indication: CHRONIC OBSTRUCTIVE PULMONARY DISEASE
     Route: 055
  2. XOPONEX [Concomitant]
  3. SPIRIVA [Concomitant]

REACTIONS (3)
  - Nervousness [Unknown]
  - Intentional drug misuse [Unknown]
  - Drug ineffective [Unknown]
